FAERS Safety Report 8166937-5 (Version None)
Quarter: 2012Q1

REPORT INFORMATION
  Report Type: 
  Country: None (occurrence: None)
  Receive Date: 20120227
  Receipt Date: 20120214
  Transmission Date: 20120608
  Serious: Yes (Death, Life-Threatening)
  Sender: FDA-Public Use
  Company Number: JP-ASTELLAS-2012US001885

PATIENT
  Age: 48 Year
  Sex: Male

DRUGS (1)
  1. AMBISOME [Suspect]
     Indication: PNEUMONIA CRYPTOCOCCAL
     Dosage: UNK
     Route: 042
     Dates: start: 20120203, end: 20120206

REACTIONS (1)
  - RENAL DISORDER [None]
